FAERS Safety Report 9000939 (Version 1)
Quarter: 2013Q1

REPORT INFORMATION
  Report Type: Spontaneous
  Country: US (occurrence: None)
  Receive Date: 20130103
  Receipt Date: 20130103
  Transmission Date: 20140127
  Serious: No
  Sender: FDA-Public Use
  Company Number: None

PATIENT
  Age: 53 Year
  Sex: Female
  Weight: 88.91 kg

DRUGS (2)
  1. TICAGRELOR [Suspect]
     Indication: ACUTE MYOCARDIAL INFARCTION
     Route: 048
     Dates: start: 20121120, end: 20121120
  2. TICAGRELOR [Suspect]
     Indication: CORONARY ARTERIAL STENT INSERTION
     Route: 048
     Dates: start: 20121120, end: 20121120

REACTIONS (9)
  - Chest discomfort [None]
  - Dyspnoea [None]
  - Cough [None]
  - Wheezing [None]
  - Oedema peripheral [None]
  - Chest pain [None]
  - Fatigue [None]
  - Pericarditis [None]
  - Anxiety [None]
